FAERS Safety Report 5581607-5 (Version None)
Quarter: 2008Q1

REPORT INFORMATION
  Report Type: 
  Country: None (occurrence: None)
  Receive Date: 20080104
  Receipt Date: 20071227
  Transmission Date: 20080703
  Serious: Yes (Hospitalization)
  Sender: FDA-Public Use
  Company Number: IT-BAYER-200810003GPV

PATIENT
  Age: 66 Year
  Sex: Male

DRUGS (2)
  1. ASPIRIN [Suspect]
     Indication: INFLUENZA
     Route: 048
     Dates: start: 20070916, end: 20070927
  2. COAPROVEL (IRBESARTAN + HYDROCHLOROTIAZIDE) [Concomitant]
     Indication: HYPERTENSION
     Route: 048

REACTIONS (2)
  - GASTRITIS EROSIVE [None]
  - MELAENA [None]
